FAERS Safety Report 9863874 (Version 1)
Quarter: 2014Q1

REPORT INFORMATION
  Report Type: Spontaneous
  Country: IT (occurrence: IT)
  Receive Date: 20140203
  Receipt Date: 20140203
  Transmission Date: 20141002
  Serious: Yes (Other)
  Sender: FDA-Public Use
  Company Number: IT-TAKEDA-2014TUS000732

PATIENT
  Sex: 0

DRUGS (6)
  1. ADENURIC [Suspect]
     Indication: HYPERURICAEMIA
     Dosage: 40 MG, QD
     Route: 048
     Dates: start: 20130601, end: 20140114
  2. AZATIOPRINA [Suspect]
     Indication: GRANULOMATOSIS WITH POLYANGIITIS
     Dosage: 75 MG, QD
     Route: 048
     Dates: start: 20131023, end: 20140114
  3. PREDNISONE [Concomitant]
     Dosage: UNK (10 MG)
     Route: 048
     Dates: start: 20130601
  4. LANSOPRAZOLO [Concomitant]
     Dosage: UNK (30 MG)
     Route: 048
     Dates: start: 20130601
  5. RAMIPRIL [Concomitant]
     Indication: HYPERTENSION
     Dosage: UNK (5 MG)
     Route: 048
     Dates: start: 20130601
  6. KAYEXALATE [Concomitant]
     Dosage: 15 MG
     Route: 048
     Dates: start: 20130601

REACTIONS (3)
  - Drug interaction [Recovering/Resolving]
  - Anaemia [Recovering/Resolving]
  - Leukopenia [Recovering/Resolving]
